FAERS Safety Report 17781036 (Version 1)
Quarter: 2020Q2

REPORT INFORMATION
  Report Type: Spontaneous
  Country: US (occurrence: US)
  Receive Date: 20200513
  Receipt Date: 20200513
  Transmission Date: 20200714
  Serious: No
  Sender: FDA-Public Use
  Company Number: None

PATIENT
  Sex: Female

DRUGS (1)
  1. STIVARGA [Suspect]
     Active Substance: REGORAFENIB
     Indication: COLON CANCER
     Dosage: 120MG DAILY 21 DAYS ON 7 OFF ORAL
     Route: 048
     Dates: start: 202002, end: 202004

REACTIONS (2)
  - Adverse drug reaction [None]
  - Therapy change [None]
